FAERS Safety Report 5699162-8 (Version None)
Quarter: 2008Q2

REPORT INFORMATION
  Report Type: 
  Country: None (occurrence: None)
  Receive Date: 20080407
  Receipt Date: 20080407
  Transmission Date: 20081010
  Serious: Yes (Other)
  Sender: FDA-Public Use
  Company Number: None

PATIENT
  Age: 31 Year
  Sex: Female
  Weight: 58.9676 kg

DRUGS (1)
  1. NITROFUR LIQUID [Suspect]
     Indication: CYSTITIS
     Dosage: 1 PILL TWICE A DAY PO
     Route: 048
     Dates: start: 20080318, end: 20080323

REACTIONS (4)
  - FLATULENCE [None]
  - HEADACHE [None]
  - NAUSEA [None]
  - TREATMENT NONCOMPLIANCE [None]
